FAERS Safety Report 9014009 (Version 1)
Quarter: 2013Q1

REPORT INFORMATION
  Report Type: Spontaneous
  Country: US (occurrence: None)
  Receive Date: 20130109
  Receipt Date: 20130109
  Transmission Date: 20140127
  Serious: No
  Sender: FDA-Public Use
  Company Number: None

PATIENT
  Age: 8 Year
  Sex: Female
  Weight: 35 kg

DRUGS (1)
  1. SUPPRELIN [Suspect]

REACTIONS (3)
  - Device breakage [None]
  - Complication of device removal [None]
  - Device dislocation [None]
